FAERS Safety Report 17791460 (Version 1)
Quarter: 2020Q2

REPORT INFORMATION
  Report Type: Spontaneous
  Country: CA (occurrence: CA)
  Receive Date: 20200515
  Receipt Date: 20200515
  Transmission Date: 20200714
  Serious: Yes (Hospitalization, Other)
  Sender: FDA-Public Use
  Company Number: CA-SAMSUNG BIOEPIS-SB-2020-15800

PATIENT
  Age: 18 Year
  Sex: Female
  Weight: 44 kg

DRUGS (1)
  1. INFLIXIMAB [Suspect]
     Active Substance: INFLIXIMAB
     Indication: CROHN^S DISEASE
     Route: 042

REACTIONS (11)
  - Vomiting [Unknown]
  - Incorrect dose administered [Unknown]
  - Nausea [Unknown]
  - Off label use [Unknown]
  - Fatigue [Unknown]
  - Heart rate irregular [Unknown]
  - Malaise [Unknown]
  - Inappropriate schedule of product administration [Unknown]
  - Screaming [Unknown]
  - Suicidal ideation [Unknown]
  - Anxiety [Unknown]
